FAERS Safety Report 21155463 (Version 1)
Quarter: 2022Q3

REPORT INFORMATION
  Report Type: Spontaneous
  Country: US (occurrence: US)
  Receive Date: 20220801
  Receipt Date: 20220801
  Transmission Date: 20221027
  Serious: Yes (Other)
  Sender: FDA-Public Use
  Company Number: US-STRIDES ARCOLAB LIMITED-2021SP027555

PATIENT
  Age: 79 Year
  Sex: Female

DRUGS (10)
  1. CLARITHROMYCIN [Suspect]
     Active Substance: CLARITHROMYCIN
     Indication: Mycobacterium avium complex infection
     Dosage: 500 MILLIGRAM, BID
     Route: 048
     Dates: start: 201910
  2. CLARITHROMYCIN [Suspect]
     Active Substance: CLARITHROMYCIN
     Indication: Genitourinary tract infection
  3. RIFAMPIN [Suspect]
     Active Substance: RIFAMPIN
     Indication: Mycobacterium avium complex infection
     Dosage: 600 MILLIGRAM, PER DAY
     Route: 048
     Dates: start: 201910
  4. RIFAMPIN [Suspect]
     Active Substance: RIFAMPIN
     Indication: Genitourinary tract infection
  5. ETHAMBUTOL [Suspect]
     Active Substance: ETHAMBUTOL HYDROCHLORIDE
     Indication: Mycobacterium avium complex infection
     Dosage: 1200 MILLIGRAM, PER DAY
     Route: 048
     Dates: start: 201910
  6. ETHAMBUTOL [Suspect]
     Active Substance: ETHAMBUTOL HYDROCHLORIDE
     Indication: Genitourinary tract infection
  7. SILVER NITRATE [Concomitant]
     Active Substance: SILVER NITRATE
     Indication: Candida infection
     Dosage: UNK, ROUTE: INSTILLATION
     Route: 065
     Dates: start: 2019, end: 2019
  8. SILVER NITRATE [Concomitant]
     Active Substance: SILVER NITRATE
     Indication: Cystitis
  9. SILVER NITRATE [Concomitant]
     Active Substance: SILVER NITRATE
     Indication: Mycobacterium avium complex infection
  10. SILVER NITRATE [Concomitant]
     Active Substance: SILVER NITRATE
     Indication: Genitourinary tract infection

REACTIONS (3)
  - Drug ineffective [Unknown]
  - Nausea [Unknown]
  - Gastrointestinal disorder [Unknown]

NARRATIVE: CASE EVENT DATE: 20190101
